FAERS Safety Report 8819276 (Version 2)
Quarter: 2012Q4

REPORT INFORMATION
  Report Type: 
  Country: BG (occurrence: BG)
  Receive Date: 20121001
  Receipt Date: 20121016
  Transmission Date: 20130627
  Serious: Yes (Hospitalization, Other)
  Sender: FDA-Public Use
  Company Number: BG-ELI_LILLY_AND_COMPANY-BG201209006615

PATIENT
  Age: 80 Year
  Sex: Female
  Weight: 62 kg

DRUGS (5)
  1. ALIMTA [Suspect]
     Indication: MESOTHELIOMA
     Dosage: UNK, other
     Dates: start: 20120619
  2. CARBOPLATIN [Concomitant]
     Dosage: UNK UNK, other
     Dates: start: 20120619, end: 20120731
  3. VITAMIN B12 [Concomitant]
     Dosage: 1000 mg, other
     Dates: start: 20120615
  4. FOLIC ACID [Concomitant]
     Dosage: 800 ug, unknown
     Dates: start: 20120615
  5. BETALOC [Concomitant]
     Dosage: 50 mg, qd

REACTIONS (2)
  - Vasculitis necrotising [Recovered/Resolved]
  - Disease progression [Unknown]
